FAERS Safety Report 5502655-7 (Version None)
Quarter: 2007Q4

REPORT INFORMATION
  Report Type: 
  Country: None (occurrence: None)
  Receive Date: 20071029
  Receipt Date: 20071017
  Transmission Date: 20080405
  Serious: Yes (Other)
  Sender: FDA-Public Use
  Company Number: US-GDP-0715185

PATIENT
  Sex: Male
  Weight: 113.3993 kg

DRUGS (1)
  1. CLOBEX [Suspect]
     Indication: PSORIASIS
     Dosage: 1 DF BID TOPICAL
     Route: 061
     Dates: start: 20070727, end: 20070816

REACTIONS (12)
  - AGITATION [None]
  - BLISTER [None]
  - BURNING SENSATION [None]
  - CAUSTIC INJURY [None]
  - DRUG ADMINISTERED AT INAPPROPRIATE SITE [None]
  - DRUG ADMINISTRATION ERROR [None]
  - OEDEMA PERIPHERAL [None]
  - PAIN IN EXTREMITY [None]
  - PARALYSIS [None]
  - PHARMACEUTICAL PRODUCT COMPLAINT [None]
  - SKIN EROSION [None]
  - THERMAL BURN [None]
